FAERS Safety Report 4600388-2 (Version None)
Quarter: 2005Q1

REPORT INFORMATION
  Report Type: 
  Country: None (occurrence: None)
  Receive Date: 20050304
  Receipt Date: 20050224
  Transmission Date: 20050727
  Serious: Yes (Death)
  Sender: FDA-Public Use
  Company Number: 2

PATIENT
  Age: 9 Year
  Sex: Female

DRUGS (6)
  1. DUPHENYL, 500MG [Suspect]
     Indication: ORNITHINE TRANSCARBAMOYLASE DEFICIENCY
     Dosage: 6 G QD PO
     Route: 048
  2. ORAL CITRULLINE [Concomitant]
  3. GLUCOSE [Concomitant]
  4. INSULIN [Concomitant]
  5. INTRALIPIDS [Concomitant]
  6. AMMONUL [Concomitant]

REACTIONS (3)
  - CARDIAC ARREST [None]
  - HYPOKALAEMIA [None]
  - VENTRICULAR TACHYCARDIA [None]
